FAERS Safety Report 6522392-X (Version None)
Quarter: 2009Q4

REPORT INFORMATION
  Report Type: 
  Country: None (occurrence: None)
  Receive Date: 20091230
  Receipt Date: 20091223
  Transmission Date: 20100525
  Serious: Yes (Other)
  Sender: FDA-Public Use
  Company Number: US-AMGEN-QUU382340

PATIENT
  Sex: Female
  Weight: 3.32 kg

DRUGS (6)
  1. ENBREL [Suspect]
     Indication: PSORIATIC ARTHROPATHY
     Route: 064
     Dates: start: 20041023, end: 20090220
  2. ENBREL [Suspect]
     Indication: PSORIASIS
  3. SULFASALAZINE [Concomitant]
     Route: 064
     Dates: end: 20090220
  4. PRILOSEC [Concomitant]
     Route: 064
     Dates: start: 20090801
  5. VITAMIN TAB [Concomitant]
     Route: 064
     Dates: start: 20080101
  6. TYLENOL (CAPLET) [Concomitant]
     Route: 064

REACTIONS (2)
  - SHOULDER DYSTOCIA [None]
  - UMBILICAL CORD AROUND NECK [None]
